FAERS Safety Report 17615890 (Version 1)
Quarter: 2020Q2

REPORT INFORMATION
  Report Type: Spontaneous
  Country: US (occurrence: US)
  Receive Date: 20200402
  Receipt Date: 20200402
  Transmission Date: 20200713
  Serious: No
  Sender: FDA-Public Use
  Company Number: US-UCBSA-2019051864

PATIENT
  Sex: Female
  Weight: 78.9 kg

DRUGS (3)
  1. NEUPRO [Suspect]
     Active Substance: ROTIGOTINE
     Indication: PARKINSON^S DISEASE
     Dosage: 4 MILLIGRAM, ONCE DAILY (QD)
     Route: 062
     Dates: start: 201907
  2. CORTISONE [Concomitant]
     Active Substance: CORTISONE
     Indication: PRURITUS
  3. CORTISONE [Concomitant]
     Active Substance: CORTISONE
     Indication: ERYTHEMA
     Dosage: UNK
     Route: 061
     Dates: start: 201911

REACTIONS (3)
  - Erythema [Not Recovered/Not Resolved]
  - Pruritus [Not Recovered/Not Resolved]
  - Application site reaction [Not Recovered/Not Resolved]
